FAERS Safety Report 15701284 (Version 3)
Quarter: 2019Q1

REPORT INFORMATION
  Report Type: Report from Study
  Country: US (occurrence: US)
  Receive Date: 20181207
  Receipt Date: 20190122
  Transmission Date: 20190417
  Serious: Yes (Other)
  Sender: FDA-Public Use
  Company Number: US-ACTELION-A-NJ2018-178476

PATIENT
  Age: 58 Year
  Sex: Female

DRUGS (5)
  1. UPTRAVI [Suspect]
     Active Substance: SELEXIPAG
     Indication: PULMONARY ARTERIAL HYPERTENSION
     Dosage: 200 MCG, BID
     Route: 048
     Dates: start: 20180822
  2. UPTRAVI [Suspect]
     Active Substance: SELEXIPAG
     Dosage: 800 MCG, BID
     Route: 048
  3. OPSUMIT [Suspect]
     Active Substance: MACITENTAN
     Indication: PULMONARY ARTERIAL HYPERTENSION
     Dosage: UNK
     Route: 048
     Dates: start: 20151213
  4. UPTRAVI [Suspect]
     Active Substance: SELEXIPAG
     Dosage: 600 MCG, BID
     Route: 048
  5. OXYGEN. [Concomitant]
     Active Substance: OXYGEN

REACTIONS (8)
  - Fibrosis [Unknown]
  - Influenza like illness [Unknown]
  - Diarrhoea [Unknown]
  - Myalgia [Unknown]
  - Blood pressure decreased [Unknown]
  - Dyspnoea [Unknown]
  - Oxygen consumption increased [Unknown]
  - Headache [Unknown]

NARRATIVE: CASE EVENT DATE: 20181118
